FAERS Safety Report 18251903 (Version 1)
Quarter: 2020Q3

REPORT INFORMATION
  Report Type: Spontaneous
  Country: US (occurrence: US)
  Receive Date: 20200523
  Receipt Date: 20200523
  Transmission Date: 20201103
  Serious: Yes (Death, Hospitalization)
  Sender: FDA-Public Use
  Company Number: None

PATIENT
  Sex: Male

DRUGS (1)
  1. HYDROXYCHLOROQUINE [Suspect]
     Active Substance: HYDROXYCHLOROQUINE
     Indication: COVID-19
     Dates: start: 2020

REACTIONS (12)
  - Pericarditis [None]
  - Rhabdomyolysis [None]
  - Haemolysis [None]
  - Metabolic acidosis [None]
  - Tachycardia [None]
  - Hypercapnia [None]
  - Hyperkalaemia [None]
  - Electrocardiogram QRS complex prolonged [None]
  - Muscle rigidity [None]
  - Hypotension [None]
  - Acidosis [None]
  - Hyperthermia [None]
